FAERS Safety Report 7169949-3 (Version None)
Quarter: 2010Q4

REPORT INFORMATION
  Report Type: 
  Country: None (occurrence: None)
  Receive Date: 20101217
  Receipt Date: 20101208
  Transmission Date: 20110411
  Serious: Yes (Disabling, Other)
  Sender: FDA-Public Use
  Company Number: US-SANOFI-AVENTIS-2010SA056074

PATIENT
  Age: 84 Year
  Sex: Female
  Weight: 64 kg

DRUGS (2)
  1. LOVENOX [Suspect]
     Route: 058
     Dates: start: 20091201, end: 20100601
  2. SYNTHROID [Concomitant]

REACTIONS (11)
  - ASTHENIA [None]
  - CONSTIPATION [None]
  - GASTROINTESTINAL DISORDER [None]
  - HAEMORRHAGE [None]
  - HYPOAESTHESIA [None]
  - LOSS OF CONSCIOUSNESS [None]
  - MONOPARESIS [None]
  - MUSCLE DISORDER [None]
  - NEURALGIA [None]
  - PAIN [None]
  - VOMITING [None]
